FAERS Safety Report 20633194 (Version 2)
Quarter: 2022Q2

REPORT INFORMATION
  Report Type: Spontaneous
  Country: CA (occurrence: CA)
  Receive Date: 20220324
  Receipt Date: 20220407
  Transmission Date: 20220721
  Serious: Yes (Other)
  Sender: FDA-Public Use
  Company Number: CA-TEVA-2022-CA-2018973

PATIENT
  Age: 31 Year
  Sex: Female

DRUGS (3)
  1. CIPROFLOXACIN [Suspect]
     Active Substance: CIPROFLOXACIN
     Indication: Urinary tract infection
     Route: 065
  2. ONABOTULINUMTOXINA [Suspect]
     Active Substance: ONABOTULINUMTOXINA
     Indication: Hyperhidrosis
     Dosage: FIRST DOSE 50U IN EACH AXILLA (TOTAL OF 100U)
     Route: 023
  3. ONABOTULINUMTOXINA [Suspect]
     Active Substance: ONABOTULINUMTOXINA
     Dosage: SECOND DOSE 100U INTO EACH OF HER PALMS AND 50U INTO EACH AXILLA
     Route: 023

REACTIONS (1)
  - Botulism [Recovered/Resolved]
